FAERS Safety Report 13778317 (Version 2)
Quarter: 2017Q4

REPORT INFORMATION
  Report Type: Spontaneous
  Country: US (occurrence: US)
  Receive Date: 20170721
  Receipt Date: 20171025
  Transmission Date: 20180320
  Serious: No
  Sender: FDA-Public Use
  Company Number: US-ST. RENATUS-2017STR00034

PATIENT
  Age: 49 Year
  Sex: Male

DRUGS (1)
  1. KOVANAZE [Suspect]
     Active Substance: OXYMETAZOLINE HYDROCHLORIDE\TETRACAINE HYDROCHLORIDE
     Indication: TOOTH REPAIR
     Dosage: 1 DOSAGE UNITS, TWICE TEN MINUTES APART
     Route: 045
     Dates: start: 20170412, end: 20170412

REACTIONS (1)
  - Drug effect incomplete [Recovered/Resolved]

NARRATIVE: CASE EVENT DATE: 20170412
